FAERS Safety Report 5235693-2 (Version None)
Quarter: 2007Q1

REPORT INFORMATION
  Report Type: 
  Country: None (occurrence: None)
  Receive Date: 20061208
  Receipt Date: 20060712
  Transmission Date: 20070707
  Serious: Yes (Other)
  Sender: FDA-Public Use
  Company Number: 2006UW14385

PATIENT
  Age: 58 Year
  Sex: Female
  Weight: 63.502 kg

DRUGS (5)
  1. CRESTOR [Suspect]
     Indication: BLOOD CHOLESTEROL INCREASED
     Dosage: 5 MG QD PO
     Route: 048
     Dates: start: 20060601, end: 20060701
  2. CRESTOR [Suspect]
     Indication: BLOOD CHOLESTEROL INCREASED
     Dosage: 10 MG QD PO
     Route: 048
     Dates: start: 20060601, end: 20060701
  3. NEXIUM ORAL [Concomitant]
  4. ALLEGRA [Concomitant]
  5. BLOOD PRESSURE MEDICATION [Concomitant]

REACTIONS (1)
  - EXOSTOSIS [None]
